FAERS Safety Report 6946069-1 (Version None)
Quarter: 2010Q3

REPORT INFORMATION
  Report Type: 
  Country: None (occurrence: None)
  Receive Date: 20100827
  Receipt Date: 20100716
  Transmission Date: 20110219
  Serious: No
  Sender: FDA-Public Use
  Company Number: A0863215A

PATIENT
  Age: 50 Year
  Sex: Female

DRUGS (4)
  1. ZOVIRAX [Suspect]
     Dosage: 1APP FIVE TIMES PER DAY
     Route: 061
  2. VENTOLIN [Concomitant]
  3. PROMETRIUM [Concomitant]
  4. CELEXA [Concomitant]

REACTIONS (2)
  - DRUG INEFFECTIVE [None]
  - PRODUCT QUALITY ISSUE [None]
